FAERS Safety Report 7033125-5 (Version None)
Quarter: 2010Q4

REPORT INFORMATION
  Report Type: 
  Country: None (occurrence: None)
  Receive Date: 20101004
  Receipt Date: 20100917
  Transmission Date: 20110411
  Serious: Yes (Hospitalization)
  Sender: FDA-Public Use
  Company Number: 2010004078

PATIENT
  Age: 49 Year
  Sex: Male

DRUGS (7)
  1. ERLOTINIB HYDROCHLORIDE [Suspect]
     Indication: RENAL CANCER
     Dosage: (150 MG, QD), ORAL
     Route: 048
     Dates: start: 20100729, end: 20100811
  2. BEVACIZUMAB [Suspect]
     Indication: RENAL CANCER
     Dosage: (10 MG/KG, Q2W), INTRAVENOUS
     Route: 042
     Dates: start: 20100729, end: 20100811
  3. XANAX [Concomitant]
  4. MORPHINE [Concomitant]
  5. COMPAZINE [Concomitant]
  6. ZOFRAN [Concomitant]
  7. HYDROCORTONE [Concomitant]

REACTIONS (1)
  - THROMBOCYTOPENIA [None]
